FAERS Safety Report 9423060 (Version 5)
Quarter: 2013Q4

REPORT INFORMATION
  Report Type: Spontaneous
  Country: BE (occurrence: None)
  Receive Date: 20130719
  Receipt Date: 20131015
  Transmission Date: 20140711
  Serious: Yes (Hospitalization)
  Sender: FDA-Public Use
  Company Number: 2013036918

PATIENT
  Age: 65 Year
  Sex: Male

DRUGS (2)
  1. HAEMATE P [Suspect]
     Indication: VON WILLEBRAND^S DISEASE
     Dates: start: 20130114
  2. HAEMATE P [Suspect]
     Indication: INTESTINAL HAEMORRHAGE
     Dates: start: 20130114

REACTIONS (3)
  - Haemoglobin decreased [None]
  - Haematochezia [None]
  - Anaemia [None]
